FAERS Safety Report 19259170 (Version 1)
Quarter: 2021Q2

REPORT INFORMATION
  Report Type: Spontaneous
  Country: US (occurrence: US)
  Receive Date: 20210514
  Receipt Date: 20210514
  Transmission Date: 20210717
  Serious: No
  Sender: FDA-Public Use
  Company Number: None

PATIENT
  Sex: Male
  Weight: 58.9 kg

DRUGS (15)
  1. DEXAMETHASONE 4MG TABLETS GREEN FRONT:54892 [Suspect]
     Active Substance: DEXAMETHASONE
     Indication: PLASMA CELL MYELOMA
     Route: 048
     Dates: start: 20201015
  2. DIPHEHYDRAMINE [Concomitant]
  3. FAMOTIDINE. [Concomitant]
     Active Substance: FAMOTIDINE
  4. ONDANSETRON [Concomitant]
     Active Substance: ONDANSETRON
  5. ATORVASTATIN [Concomitant]
     Active Substance: ATORVASTATIN
  6. ASPIRIN. [Concomitant]
     Active Substance: ASPIRIN
  7. REVLIMID [Concomitant]
     Active Substance: LENALIDOMIDE
  8. TAMSULOSIN [Concomitant]
     Active Substance: TAMSULOSIN
  9. XANAX [Concomitant]
     Active Substance: ALPRAZOLAM
  10. MIDODRINE [Concomitant]
     Active Substance: MIDODRINE
  11. ACYCLOVIR. [Concomitant]
     Active Substance: ACYCLOVIR
  12. VELCADE [Concomitant]
     Active Substance: BORTEZOMIB
  13. COREG [Concomitant]
     Active Substance: CARVEDILOL
  14. SEVELAMER [Concomitant]
     Active Substance: SEVELAMER
  15. FINASTRIDE [Concomitant]
     Active Substance: FINASTERIDE

REACTIONS (5)
  - Muscular weakness [None]
  - Dizziness [None]
  - Tremor [None]
  - Dysphonia [None]
  - Muscle spasms [None]
